FAERS Safety Report 7163147-5 (Version None)
Quarter: 2010Q4

REPORT INFORMATION
  Report Type: 
  Country: None (occurrence: None)
  Receive Date: 20101215
  Receipt Date: 20100304
  Transmission Date: 20110411
  Serious: Yes (Other)
  Sender: FDA-Public Use
  Company Number: DK-PFIZER INC-2010028349

PATIENT
  Sex: Female

DRUGS (5)
  1. LYRICA [Suspect]
     Indication: GENERALISED ANXIETY DISORDER
     Dosage: 25 MG, 2X/DAY
  2. LYRICA [Suspect]
     Dosage: 25 MG, 3X/DAY
  3. LYRICA [Suspect]
     Dosage: 25 MG, 1X/DAY
  4. ACETAMINOPHEN [Concomitant]
  5. CODEINE [Concomitant]

REACTIONS (4)
  - ANXIETY [None]
  - DEPRESSION [None]
  - SLEEP DISORDER [None]
  - WITHDRAWAL SYNDROME [None]
